FAERS Safety Report 21177961 (Version 2)
Quarter: 2024Q4

REPORT INFORMATION
  Report Type: Report from Study
  Country: FR (occurrence: FR)
  Receive Date: 20220805
  Receipt Date: 20241128
  Transmission Date: 20250114
  Serious: Yes (Life-Threatening)
  Sender: SERVIER
  Company Number: FR-SERVIER-S22007981

PATIENT

DRUGS (15)
  1. PEGASPARGASE [Suspect]
     Active Substance: PEGASPARGASE
     Indication: Acute lymphocytic leukaemia
     Dosage: 3760 IU, D6
     Route: 042
     Dates: start: 20211109, end: 20211109
  2. METHOTREXATE [Suspect]
     Active Substance: METHOTREXATE
     Indication: Acute lymphocytic leukaemia
     Dosage: 7750 MG, D1 IN 24H
     Route: 042
     Dates: start: 20211220, end: 20211221
  3. MERCAPTOPURINE [Suspect]
     Active Substance: MERCAPTOPURINE
     Indication: Acute lymphocytic leukaemia
     Dosage: 38 MG, D8
     Route: 048
     Dates: start: 20211220, end: 20211221
  4. DEXAMETHASONE [Suspect]
     Active Substance: DEXAMETHASONE
     Indication: Acute lymphocytic leukaemia
     Dosage: 32 MG, D1 TO D6
     Route: 037
     Dates: start: 20211104, end: 20211109
  5. MITOXANTRONE [Suspect]
     Active Substance: MITOXANTRONE HYDROCHLORIDE
     Indication: Acute lymphocytic leukaemia
     Dosage: 13 MG, D3 TO D4
     Route: 042
     Dates: start: 20211106, end: 20211107
  6. CYTARABINE [Suspect]
     Active Substance: CYTARABINE
     Indication: Acute lymphocytic leukaemia
     Dosage: 6560 MG, D1 TO D2
     Route: 042
     Dates: start: 20211104, end: 20211105
  7. ETOPOSIDE [Suspect]
     Active Substance: ETOPOSIDE
     Indication: Acute lymphocytic leukaemia
     Dosage: 123 MG, D3 TO D5
     Route: 042
     Dates: start: 20211106, end: 20211108
  8. ENALAPRIL [Concomitant]
     Active Substance: ENALAPRIL
     Indication: Cardiac failure
     Dosage: 2.5 MG
     Route: 048
     Dates: start: 20211104
  9. ATARAX [Concomitant]
     Active Substance: HYDROXYZINE HYDROCHLORIDE
     Indication: Anxiety
     Dosage: 40 MG
     Route: 042
     Dates: start: 20210704
  10. ATARAX [Concomitant]
     Active Substance: HYDROXYZINE HYDROCHLORIDE
     Indication: Pain
  11. ONDANSETRON [Concomitant]
     Active Substance: ONDANSETRON
     Indication: Vomiting
     Dosage: 16 MG
     Route: 048
     Dates: start: 20210626
  12. PERFALGAN [Concomitant]
     Active Substance: ACETAMINOPHEN
     Indication: Back pain
     Dosage: 2250 MG
     Route: 042
     Dates: start: 20210628
  13. PERFALGAN [Concomitant]
     Active Substance: ACETAMINOPHEN
     Indication: Abdominal pain
  14. NUBAIN [Concomitant]
     Active Substance: NALBUPHINE HYDROCHLORIDE
     Indication: Pain
     Dosage: 16 MG
     Route: 042
     Dates: start: 20210705
  15. OMEPRAZOLE [Concomitant]
     Active Substance: OMEPRAZOLE
     Indication: Gastrointestinal disorder prophylaxis
     Dosage: 60 MG
     Route: 042
     Dates: start: 20210705

REACTIONS (1)
  - Acute kidney injury [Recovered/Resolved]

NARRATIVE: CASE EVENT DATE: 20211222
